FAERS Safety Report 25422126 (Version 1)
Quarter: 2025Q2

REPORT INFORMATION
  Report Type: Spontaneous
  Country: SG (occurrence: SG)
  Receive Date: 20250611
  Receipt Date: 20250611
  Transmission Date: 20250717
  Serious: Yes (Disabling)
  Sender: ABBVIE
  Company Number: SG-LUNDBECK-DKLU4015289

PATIENT
  Age: 41 Year
  Sex: Male

DRUGS (3)
  1. LEXAPRO [Suspect]
     Active Substance: ESCITALOPRAM OXALATE
     Indication: Depression
     Route: 065
     Dates: start: 20240601, end: 20250501
  2. FLECAINIDE ACETATE [Concomitant]
     Active Substance: FLECAINIDE ACETATE
     Indication: Arrhythmia
     Dosage: 100MG, HALF TABLETS 2 TIMES DAILY
  3. FENOFIBRATE [Concomitant]
     Active Substance: FENOFIBRATE
     Indication: Blood cholesterol increased

REACTIONS (3)
  - Withdrawal syndrome [Recovered/Resolved]
  - Blood cholesterol increased [Unknown]
  - Hypometabolism [Unknown]

NARRATIVE: CASE EVENT DATE: 20250512
